FAERS Safety Report 9872211 (Version 1)
Quarter: 2014Q1

REPORT INFORMATION
  Report Type: Spontaneous
  Country: US (occurrence: US)
  Receive Date: 20140205
  Receipt Date: 20140205
  Transmission Date: 20141002
  Serious: No
  Sender: FDA-Public Use
  Company Number: US-ALLERGAN-1306262US

PATIENT
  Age: 57 Year
  Sex: Female

DRUGS (7)
  1. BOTOX [Suspect]
     Indication: SKIN WRINKLING
     Dosage: UNK, SINGLE
     Route: 030
     Dates: start: 20130409, end: 20130409
  2. BOTOX [Suspect]
     Indication: SKIN WRINKLING
  3. BOTOX [Suspect]
     Indication: SKIN WRINKLING
  4. JUVEDERM [Concomitant]
     Indication: SKIN WRINKLING
  5. WELLBUTRIN [Concomitant]
     Indication: ANXIETY
     Dosage: 200 MG, BID
     Route: 048
  6. SIMVASTATIN [Concomitant]
     Indication: PRODUCT USED FOR UNKNOWN INDICATION
     Dosage: 20 MG, QHS
     Route: 048
  7. ARNICA                             /01006901/ [Concomitant]
     Indication: PRODUCT USED FOR UNKNOWN INDICATION
     Dosage: UNK
     Route: 065

REACTIONS (5)
  - Asthenopia [Unknown]
  - Facial paresis [Unknown]
  - Asthenia [Unknown]
  - Eyelid ptosis [Unknown]
  - Vision blurred [Unknown]
